FAERS Safety Report 4498674-2 (Version None)
Quarter: 2004Q4

REPORT INFORMATION
  Report Type: 
  Country: None (occurrence: None)
  Receive Date: 20041111
  Receipt Date: 20041101
  Transmission Date: 20050328
  Serious: Yes (Hospitalization)
  Sender: FDA-Public Use
  Company Number: GB-ABBOTT-04P-167-0279684-00

PATIENT
  Age: 82 Year
  Sex: Male

DRUGS (1)
  1. KLARICID TABLETS [Suspect]
     Indication: DRUG USE FOR UNKNOWN INDICATION
     Route: 048

REACTIONS (5)
  - ACUTE MYELOID LEUKAEMIA [None]
  - CONTUSION [None]
  - MALAISE [None]
  - RASH [None]
  - STAPHYLOCOCCAL INFECTION [None]
